FAERS Safety Report 11289639 (Version 13)
Quarter: 2018Q2

REPORT INFORMATION
  Report Type: Report from Study
  Country: CA (occurrence: CA)
  Receive Date: 20150721
  Receipt Date: 20180627
  Transmission Date: 20180711
  Serious: Yes (Hospitalization, Other)
  Sender: FDA-Public Use
  Company Number: PHHY2015CA087284

PATIENT
  Age: 68 Year
  Sex: Female

DRUGS (1)
  1. SANDOSTATIN LAR DEPOT [Suspect]
     Active Substance: OCTREOTIDE ACETATE
     Indication: NEUROENDOCRINE CARCINOMA METASTATIC
     Dosage: 30 MG, QMO (EVERY 4 WEEKS)
     Route: 030
     Dates: start: 20150630

REACTIONS (15)
  - Hepatic infection [Unknown]
  - Somnolence [Unknown]
  - Renal disorder [Unknown]
  - Hepatic lesion [Unknown]
  - Thrombosis [Unknown]
  - Erythema [Unknown]
  - Liver abscess [Unknown]
  - Muscle atrophy [Unknown]
  - Blood pressure increased [Unknown]
  - Viral infection [Unknown]
  - Peripheral swelling [Not Recovered/Not Resolved]
  - Skin warm [Unknown]
  - Inflammation [Not Recovered/Not Resolved]
  - Sudden onset of sleep [Unknown]
  - Pneumonia [Unknown]

NARRATIVE: CASE EVENT DATE: 20171103
